FAERS Safety Report 11109934 (Version 1)
Quarter: 2015Q2

REPORT INFORMATION
  Report Type: Spontaneous
  Country: US (occurrence: None)
  Receive Date: 20150512
  Receipt Date: 20150512
  Transmission Date: 20150821
  Serious: Yes (Hospitalization, Other)
  Sender: FDA-Public Use
  Company Number: None

PATIENT
  Age: 28 Year
  Sex: Female

DRUGS (1)
  1. HUMIRA [Suspect]
     Active Substance: ADALIMUMAB
     Indication: PSORIASIS
     Dates: start: 20150508, end: 20150509

REACTIONS (5)
  - Chest discomfort [None]
  - Dyspnoea [None]
  - Therapy cessation [None]
  - Rash [None]
  - Exposure during pregnancy [None]

NARRATIVE: CASE EVENT DATE: 20150508
